FAERS Safety Report 5028083-9 (Version None)
Quarter: 2006Q2

REPORT INFORMATION
  Report Type: 
  Country: None (occurrence: None)
  Receive Date: 20060501
  Receipt Date: 20060111
  Transmission Date: 20061013
  Serious: No
  Sender: FDA-Public Use
  Company Number: 200610333US

PATIENT
  Age: 37 Year
  Sex: Female

DRUGS (3)
  1. KETEK [Suspect]
     Indication: SINUSITIS
     Dosage: 400 MG QD PO
     Route: 048
     Dates: start: 20051229, end: 20060103
  2. LORATADINE (CLARITIN) [Concomitant]
  3. ESTROGENS CONJUGATED (PREMARIN) [Concomitant]

REACTIONS (5)
  - CENTRAL NERVOUS SYSTEM STIMULATION [None]
  - FEELING ABNORMAL [None]
  - FEELING JITTERY [None]
  - MANIA [None]
  - THINKING ABNORMAL [None]
